FAERS Safety Report 5916173-5 (Version None)
Quarter: 2008Q4

REPORT INFORMATION
  Report Type: 
  Country: None (occurrence: None)
  Receive Date: 20081013
  Receipt Date: 20081003
  Transmission Date: 20090506
  Serious: Yes (Other)
  Sender: FDA-Public Use
  Company Number: US-BAYER-200813985BCC

PATIENT
  Sex: Male

DRUGS (1)
  1. ALEVE [Suspect]
     Indication: SUICIDE ATTEMPT
     Dosage: UNIT DOSE: 220 MG
     Route: 048
     Dates: start: 20081002

REACTIONS (1)
  - DRUG TOXICITY [None]
